FAERS Safety Report 18453142 (Version 3)
Quarter: 2021Q2

REPORT INFORMATION
  Report Type: Report from Study
  Country: US (occurrence: US)
  Receive Date: 20201102
  Receipt Date: 20210407
  Transmission Date: 20210717
  Serious: No
  Sender: FDA-Public Use
  Company Number: NVSC2020US287077

PATIENT
  Sex: Female

DRUGS (1)
  1. COSENTYX [Suspect]
     Active Substance: SECUKINUMAB
     Indication: PSORIATIC ARTHROPATHY
     Dosage: 300 MG, QMO LOADING SERIES AND HAD ONE MAITENANCE DOSE, SRF STATES Q4 WEEKS, PTATIENT THOUGHT Q2 WEE
     Route: 058
     Dates: start: 202008

REACTIONS (1)
  - Inappropriate schedule of product administration [Unknown]
